FAERS Safety Report 15541281 (Version 1)
Quarter: 2018Q4

REPORT INFORMATION
  Report Type: Spontaneous
  Country: SE (occurrence: SE)
  Receive Date: 20181023
  Receipt Date: 20181023
  Transmission Date: 20190205
  Serious: Yes (Life-Threatening, Hospitalization)
  Sender: FDA-Public Use
  Company Number: SE-AVENTIS-200312482EU

PATIENT
  Age: 76 Year
  Sex: Female

DRUGS (6)
  1. CALCIUM [Concomitant]
     Active Substance: CALCIUM
     Route: 065
  2. VITAMINS NOS [Concomitant]
     Active Substance: VITAMINS
  3. ARAVA [Suspect]
     Active Substance: LEFLUNOMIDE
     Indication: RHEUMATOID ARTHRITIS
     Dosage: UNK UNK,QD
     Route: 048
     Dates: start: 20011015, end: 20011213
  4. PREDNISOLONE. [Concomitant]
     Active Substance: PREDNISOLONE
  5. LEVAXIN [Concomitant]
     Active Substance: LEVOTHYROXINE SODIUM
  6. SALAZOPYRIN [Concomitant]
     Active Substance: SULFASALAZINE

REACTIONS (1)
  - Vocal cord paralysis [Not Recovered/Not Resolved]

NARRATIVE: CASE EVENT DATE: 20020207
